FAERS Safety Report 6291611-X (Version None)
Quarter: 2009Q3

REPORT INFORMATION
  Report Type: 
  Country: None (occurrence: None)
  Receive Date: 20090730
  Receipt Date: 20090730
  Transmission Date: 20100115
  Serious: Yes (Hospitalization)
  Sender: FDA-Public Use
  Company Number: None

PATIENT
  Age: 48 Year
  Sex: Male
  Weight: 99.5 kg

DRUGS (9)
  1. BC POWDERS -AND/OR GOODY'S- [Suspect]
     Indication: HEADACHE
     Dosage: 12-16 PACKS PER DAY PO, CHRONIC
     Route: 048
  2. PLAVIX [Suspect]
     Indication: ANGIOPLASTY
     Dosage: 75MG DAILY PO
     Route: 048
  3. PERCOCET [Concomitant]
  4. BYSTOLIC [Concomitant]
  5. CYMBALTA [Concomitant]
  6. LAMICTAL [Concomitant]
  7. MICARDIS [Concomitant]
  8. NORVASC [Concomitant]
  9. SYMCOR [Concomitant]

REACTIONS (5)
  - ARTERIAL OCCLUSIVE DISEASE [None]
  - DRUG LEVEL INCREASED [None]
  - INCORRECT DOSE ADMINISTERED [None]
  - MIGRAINE [None]
  - SUBARACHNOID HAEMORRHAGE [None]
